FAERS Safety Report 7433181-6 (Version None)
Quarter: 2011Q2

REPORT INFORMATION
  Report Type: 
  Country: None (occurrence: None)
  Receive Date: 20110422
  Receipt Date: 20110419
  Transmission Date: 20111010
  Serious: Yes (Other)
  Sender: FDA-Public Use
  Company Number: PT-PFIZER INC-2011081819

PATIENT
  Sex: Male

DRUGS (2)
  1. ZELDOX [Suspect]
     Indication: MAJOR DEPRESSION
     Dosage: 80 MG, 2X/DAY
     Route: 048
     Dates: start: 20110315, end: 20110401
  2. ENALAPRIL [Concomitant]
     Indication: HYPERTENSION
     Dosage: UNK
     Route: 048

REACTIONS (1)
  - OEDEMA PERIPHERAL [None]
